FAERS Safety Report 9472160 (Version 1)
Quarter: 2013Q3

REPORT INFORMATION
  Report Type: Spontaneous
  Country: US (occurrence: None)
  Receive Date: 20130821
  Receipt Date: 20130821
  Transmission Date: 20140515
  Serious: Yes (Death, Life-Threatening)
  Sender: FDA-Public Use
  Company Number: None

PATIENT
  Age: 73 Year
  Sex: Female
  Weight: 83.92 kg

DRUGS (1)
  1. ENTERIC COATED ASPIRIN [Suspect]
     Route: 048

REACTIONS (1)
  - Product quality issue [None]
